FAERS Safety Report 5239469-1 (Version None)
Quarter: 2007Q1

REPORT INFORMATION
  Report Type: 
  Country: None (occurrence: None)
  Receive Date: 20070216
  Receipt Date: 20070205
  Transmission Date: 20070707
  Serious: Yes (Hospitalization, Other)
  Sender: FDA-Public Use
  Company Number: US-AMGEN-STX206462

PATIENT
  Sex: Male

DRUGS (4)
  1. ENBREL [Suspect]
     Indication: PSORIATIC ARTHROPATHY
     Route: 058
     Dates: start: 20040405
  2. METHOTREXATE [Concomitant]
     Dates: start: 20030822
  3. DEPAKOTE [Concomitant]
  4. PROVIGIL [Concomitant]

REACTIONS (6)
  - DELUSION [None]
  - DEPRESSED LEVEL OF CONSCIOUSNESS [None]
  - HALLUCINATION [None]
  - NARCOLEPSY [None]
  - PARALYSIS [None]
  - SYNCOPE [None]
